FAERS Safety Report 4645782-9 (Version None)
Quarter: 2005Q2

REPORT INFORMATION
  Report Type: 
  Country: None (occurrence: None)
  Receive Date: 20050425
  Receipt Date: 20050412
  Transmission Date: 20051028
  Serious: Yes (Other)
  Sender: FDA-Public Use
  Company Number: MED000078

PATIENT
  Age: 20 Year
  Sex: Male
  Weight: 64.8644 kg

DRUGS (1)
  1. LACTATED RINGER'S [Suspect]
     Indication: PREOPERATIVE CARE
     Dates: start: 20050412

REACTIONS (1)
  - URTICARIA [None]
